FAERS Safety Report 24892141 (Version 1)
Quarter: 2025Q1

REPORT INFORMATION
  Report Type: Spontaneous
  Country: JP (occurrence: JP)
  Receive Date: 20250128
  Receipt Date: 20250128
  Transmission Date: 20250408
  Serious: Yes (Life-Threatening, Hospitalization, Other)
  Sender: GLAXOSMITHKLINE
  Company Number: JP-TAKEDA-2024TJP017055

PATIENT

DRUGS (7)
  1. ZEJULA [Interacting]
     Active Substance: NIRAPARIB
     Indication: Malignant peritoneal neoplasm
     Dosage: 200 MILLIGRAM, QD
     Route: 048
     Dates: start: 20231006, end: 20231021
  2. ZEJULA [Interacting]
     Active Substance: NIRAPARIB
     Indication: Ovarian cancer
     Route: 065
  3. ZEJULA [Interacting]
     Active Substance: NIRAPARIB
     Indication: Fallopian tube cancer
  4. CYCLOSPORINE [Interacting]
     Active Substance: CYCLOSPORINE
     Indication: Renal transplant
     Dosage: 40 MILLIGRAM, BID
     Route: 048
  5. ELIQUIS [Suspect]
     Active Substance: APIXABAN
     Indication: Cerebral infarction
     Dosage: 2.5 MILLIGRAM, BID
     Route: 048
  6. PRASUGREL HYDROCHLORIDE [Suspect]
     Active Substance: PRASUGREL HYDROCHLORIDE
     Indication: Myocardial infarction
     Dosage: 3.75 MILLIGRAM, QD
     Route: 048
     Dates: start: 20230828, end: 20231021
  7. PREDNISOLONE [Concomitant]
     Active Substance: PREDNISOLONE
     Indication: Renal transplant
     Dosage: 5 MILLIGRAM, QD
     Route: 048

REACTIONS (11)
  - Pharyngeal haematoma [Recovered/Resolved]
  - Sialoadenitis [Unknown]
  - Atrial fibrillation [Unknown]
  - Thrombocytopenia [Recovered/Resolved]
  - Febrile neutropenia [Recovered/Resolved]
  - Drug interaction [Unknown]
  - Oral infection [Unknown]
  - Blood calcium decreased [Unknown]
  - Stomatitis [Unknown]
  - Diarrhoea [Recovering/Resolving]
  - Underdose [Unknown]

NARRATIVE: CASE EVENT DATE: 20231021
